FAERS Safety Report 4774519-8 (Version None)
Quarter: 2005Q3

REPORT INFORMATION
  Report Type: 
  Country: None (occurrence: None)
  Receive Date: 20050920
  Receipt Date: 20050902
  Transmission Date: 20060218
  Serious: Yes (Death)
  Sender: FDA-Public Use
  Company Number: THYM-10726

PATIENT
  Age: 55 Year
  Sex: Male

DRUGS (4)
  1. THYMOGLOBULIN [Suspect]
     Indication: BONE MARROW TRANSPLANT
     Dosage: 1.5 MG/KG QD IV
     Route: 042
     Dates: start: 20050613, end: 20050615
  2. CLADRIBINE [Concomitant]
  3. CYCLOSPORINE [Concomitant]
  4. MYCOPHENOLATE MOFETIL [Concomitant]

REACTIONS (2)
  - ANOXIC ENCEPHALOPATHY [None]
  - CARDIAC ARREST [None]
